FAERS Safety Report 17128814 (Version 1)
Quarter: 2019Q4

REPORT INFORMATION
  Report Type: Spontaneous
  Country: US (occurrence: US)
  Receive Date: 20191206
  Receipt Date: 20191206
  Transmission Date: 20200122
  Serious: No
  Sender: FDA-Public Use
  Company Number: None

PATIENT
  Age: 45 Year
  Sex: Female
  Weight: 69.75 kg

DRUGS (1)
  1. CAPZASIN HP ARTHRITIS PAIN RELIEF [Suspect]
     Active Substance: CAPSAICIN
     Indication: MYALGIA
     Route: 061
     Dates: start: 20191206, end: 20191206

REACTIONS (3)
  - Application site pain [None]
  - Application site vesicles [None]
  - Application site erythema [None]

NARRATIVE: CASE EVENT DATE: 20191206
